FAERS Safety Report 12864725 (Version 2)
Quarter: 2016Q4

REPORT INFORMATION
  Report Type: Report from Study
  Country: MX (occurrence: MX)
  Receive Date: 20161020
  Receipt Date: 20161206
  Transmission Date: 20170207
  Serious: Yes (Other)
  Sender: FDA-Public Use
  Company Number: PHHY2016MX127593

PATIENT
  Age: 39 Year
  Sex: Female
  Weight: 76 kg

DRUGS (3)
  1. INDERALICI [Concomitant]
     Indication: ANXIETY
     Dosage: 10 MG, UNK
     Route: 048
     Dates: start: 201508
  2. TEGRETOL [Suspect]
     Active Substance: CARBAMAZEPINE
     Indication: FEELING ABNORMAL
  3. TEGRETOL [Suspect]
     Active Substance: CARBAMAZEPINE
     Indication: SLEEP DISORDER
     Dosage: 0.5 DF, QHS (AT NIGHT FOR 4 OR 6 MONTHS)
     Route: 048
     Dates: start: 201510, end: 201603

REACTIONS (13)
  - Nervousness [Unknown]
  - Speech disorder [Unknown]
  - Headache [Unknown]
  - Depression [Not Recovered/Not Resolved]
  - Anxiety [Unknown]
  - Dyspnoea [Unknown]
  - Asphyxia [Recovered/Resolved]
  - Throat tightness [Recovered/Resolved]
  - Neck pain [Unknown]
  - Wrong technique in product usage process [Recovered/Resolved]
  - Weight increased [Unknown]
  - Product use issue [Recovered/Resolved]
  - Choking sensation [Unknown]

NARRATIVE: CASE EVENT DATE: 201510
